FAERS Safety Report 8538064-6 (Version None)
Quarter: 2012Q3

REPORT INFORMATION
  Report Type: 
  Country: None (occurrence: None)
  Receive Date: 20120725
  Receipt Date: 20120713
  Transmission Date: 20120928
  Serious: Yes (Hospitalization)
  Sender: FDA-Public Use
  Company Number: GB-PFIZER INC-2011106263

PATIENT
  Age: 80 Year
  Sex: Male

DRUGS (15)
  1. ZOPICLONE [Concomitant]
     Dosage: UNK
     Dates: start: 20100601
  2. PANCREATIN [Concomitant]
     Dosage: UNK
     Dates: start: 20100921
  3. SUNITINIB MALATE [Suspect]
     Indication: RENAL CELL CARCINOMA
     Dosage: 50 MG, UNK
     Route: 048
  4. PAZOPANIB [Suspect]
     Indication: RENAL CELL CARCINOMA
     Dosage: UNK
     Route: 048
     Dates: start: 20101006
  5. LOPERAMIDE HYDROCHLORIDE [Concomitant]
     Dosage: UNK
     Dates: start: 20100601
  6. MOVIPREP [Concomitant]
     Dosage: UNK
     Dates: start: 20010104, end: 20110111
  7. DILTIAZEM HYDROCHLORIDE [Concomitant]
     Dosage: UNK
     Dates: start: 20110505, end: 20110509
  8. CIPROFLOXACIN [Concomitant]
     Dosage: UNK
     Dates: start: 20110506, end: 20110508
  9. DOXAZOSIN [Concomitant]
     Dosage: UNK
     Dates: start: 20090101
  10. ATORVASTATIN CALCIUM [Concomitant]
     Dosage: UNK
     Dates: start: 20110208
  11. DALTEPARIN SODIUM [Concomitant]
     Dosage: UNK
     Dates: start: 20110204, end: 20110216
  12. BENDROFLUAZIDE [Concomitant]
     Dosage: UNK
     Dates: start: 20000101
  13. PANCREATIN [Concomitant]
     Dosage: UNK
     Dates: start: 20100921, end: 20100921
  14. NYSTATIN [Concomitant]
     Dosage: UNK
     Dates: start: 20110108, end: 20110111
  15. MELOXICAM [Concomitant]

REACTIONS (2)
  - FATIGUE [None]
  - PANCYTOPENIA [None]
